FAERS Safety Report 18292670 (Version 1)
Quarter: 2020Q3

REPORT INFORMATION
  Report Type: Spontaneous
  Country: CO (occurrence: CO)
  Receive Date: 20200922
  Receipt Date: 20200922
  Transmission Date: 20201103
  Serious: Yes (Other)
  Sender: FDA-Public Use
  Company Number: CO-AMGEN-COLSP2020150910

PATIENT
  Age: 61 Year
  Sex: Female
  Weight: 52 kg

DRUGS (7)
  1. FOSAPREPITANT [Concomitant]
     Active Substance: FOSAPREPITANT
     Indication: RECTOSIGMOID CANCER
     Dosage: 150 MILLIGRAM, QD
     Route: 042
     Dates: start: 20200810
  2. ONDANSETRON [Concomitant]
     Active Substance: ONDANSETRON
     Indication: RECTOSIGMOID CANCER
     Dosage: 16 MILLIGRAM, QD
     Route: 042
     Dates: start: 20200810
  3. FLUOROURACILO [Concomitant]
     Active Substance: FLUOROURACIL
     Indication: RECTOSIGMOID CANCER
     Dosage: 620.01 MILLIGRAM, QD
     Route: 042
     Dates: start: 20200810
  4. CALCIUM FOLINATE [Concomitant]
     Active Substance: LEUCOVORIN CALCIUM
     Indication: RECTOSIGMOID CANCER
     Dosage: 620.01 MILLIGRAM, QD
     Route: 042
     Dates: start: 20200810
  5. HYDROCORTISONE SODIUM SUCCINATE [Concomitant]
     Active Substance: HYDROCORTISONE SODIUM SUCCINATE
     Indication: RECTOSIGMOID CANCER
     Dosage: 100 MILLIGRAM, QD FOR 2 DAYS
     Route: 042
     Dates: start: 20200810
  6. MVASI [Suspect]
     Active Substance: BEVACIZUMAB-AWWB
     Indication: RECTOSIGMOID CANCER
     Dosage: 265.44 MILLIGRAM, QD
     Route: 042
     Dates: start: 20200810
  7. DALTEPARIN [Concomitant]
     Active Substance: DALTEPARIN
     Indication: SUBCLAVIAN VEIN OCCLUSION
     Dosage: 10000 INTERNATIONAL UNIT, QD
     Route: 058
     Dates: start: 20200821

REACTIONS (1)
  - Fluid retention [Not Recovered/Not Resolved]

NARRATIVE: CASE EVENT DATE: 20200912
